FAERS Safety Report 9760288 (Version 1)
Quarter: 2013Q4

REPORT INFORMATION
  Report Type: Spontaneous
  Country: US (occurrence: US)
  Receive Date: 20131216
  Receipt Date: 20131216
  Transmission Date: 20140711
  Serious: Yes (Hospitalization)
  Sender: FDA-Public Use
  Company Number: US-GILEAD-2010-0028868

PATIENT
  Sex: Female
  Weight: 63.96 kg

DRUGS (13)
  1. LETAIRIS [Suspect]
     Indication: PULMONARY ARTERIAL HYPERTENSION
     Route: 048
     Dates: start: 20090822
  2. REMODULIN [Concomitant]
  3. ALDACTONE [Concomitant]
  4. FUROSEMIDE [Concomitant]
  5. AMIODARONE [Concomitant]
  6. EVOXAC [Concomitant]
  7. LEVOTHYROXINE [Concomitant]
  8. IMODIUM A-D [Concomitant]
  9. MICRO-K [Concomitant]
  10. IRON [Concomitant]
  11. FOLIC ACID [Concomitant]
  12. VITAMIN D [Concomitant]
  13. MULTIVITAMIN [Concomitant]

REACTIONS (1)
  - Fluid overload [Unknown]
